FAERS Safety Report 15343699 (Version 1)
Quarter: 2018Q3

REPORT INFORMATION
  Report Type: Other
  Country: DE (occurrence: DE)
  Receive Date: 20180903
  Receipt Date: 20180903
  Transmission Date: 20181010
  Serious: Yes (Death, Hospitalization)
  Sender: FDA-Public Use
  Company Number: DE-VISTAPHARM, INC.-VER201808-000804

PATIENT
  Age: 98 Year
  Sex: Male

DRUGS (1)
  1. MORPHINE [Suspect]
     Active Substance: MORPHINE
     Indication: PALLIATIVE CARE
     Dosage: UNKNOWN

REACTIONS (7)
  - Respiratory failure [Fatal]
  - Fall [Fatal]
  - Pneumonia [Fatal]
  - Cardiac failure [Fatal]
  - Overdose [Fatal]
  - Femoral neck fracture [Fatal]
  - Toxicity to various agents [Fatal]
